FAERS Safety Report 7908454-0 (Version None)
Quarter: 2011Q4

REPORT INFORMATION
  Report Type: 
  Country: None (occurrence: None)
  Receive Date: 20111110
  Receipt Date: 20111110
  Transmission Date: 20120403
  Serious: No
  Sender: FDA-Public Use
  Company Number: None

PATIENT
  Age: 8 Year
  Sex: Male
  Weight: 37 kg

DRUGS (2)
  1. OROS METHYLPHENIDATE [Suspect]
     Indication: ATTENTION DEFICIT/HYPERACTIVITY DISORDER
     Dosage: 72 MG GD
     Dates: start: 20111031, end: 20111103
  2. OROS METHYLPHENIDATE [Suspect]
     Indication: OPPOSITIONAL DEFIANT DISORDER
     Dosage: 72 MG GD
     Dates: start: 20111031, end: 20111103

REACTIONS (1)
  - ABNORMAL BEHAVIOUR [None]
